FAERS Safety Report 16596839 (Version 1)
Quarter: 2019Q3

REPORT INFORMATION
  Report Type: Spontaneous
  Country: US (occurrence: US)
  Receive Date: 20190718
  Receipt Date: 20190718
  Transmission Date: 20191004
  Serious: Yes (Death, Hospitalization, Other)
  Sender: FDA-Public Use
  Company Number: None

PATIENT
  Age: 71 Year
  Sex: Female
  Weight: 57.6 kg

DRUGS (13)
  1. TRAZODONE [Concomitant]
     Active Substance: TRAZODONE HYDROCHLORIDE
     Dates: start: 20190605, end: 20190622
  2. ATIVAN 1MG [Concomitant]
     Dates: start: 20190403, end: 20190622
  3. ALBUTEROL. [Concomitant]
     Active Substance: ALBUTEROL
     Dates: start: 20190612, end: 20190622
  4. FEMARA [Concomitant]
     Active Substance: LETROZOLE
     Dates: start: 20180504, end: 20190622
  5. METOPROLOL XL 25MG [Concomitant]
     Dates: start: 20190306, end: 20190622
  6. IBRANCE [Suspect]
     Active Substance: PALBOCICLIB
     Indication: BREAST CANCER
     Dosage: ?          OTHER FREQUENCY:T1 PO QD X3 WKS;?
     Route: 048
     Dates: start: 20180514, end: 20190605
  7. ASA 81MG [Concomitant]
     Active Substance: ASPIRIN
     Dates: start: 20170717, end: 20190622
  8. ZOLOFT [Concomitant]
     Active Substance: SERTRALINE HYDROCHLORIDE
     Dates: start: 20190306, end: 20190622
  9. ZOFRAN 4MG [Concomitant]
     Dates: start: 20171229, end: 20190622
  10. XGEVA 70G/ML [Concomitant]
     Dates: start: 20190227, end: 20190523
  11. PRAVASTATIN. [Concomitant]
     Active Substance: PRAVASTATIN
     Dates: start: 20190306, end: 20190622
  12. GABAPENTIN 300MG [Concomitant]
     Active Substance: GABAPENTIN
     Dates: start: 20190103, end: 20190622
  13. COLACE [Concomitant]
     Active Substance: DOCUSATE SODIUM
     Dates: start: 20190413, end: 20190622

REACTIONS (4)
  - Metastases to bone [None]
  - Pneumonia [None]
  - Acute respiratory distress syndrome [None]
  - Pneumonitis [None]

NARRATIVE: CASE EVENT DATE: 20190616
